FAERS Safety Report 19198845 (Version 1)
Quarter: 2021Q2

REPORT INFORMATION
  Report Type: Spontaneous
  Country: BR (occurrence: BR)
  Receive Date: 20210429
  Receipt Date: 20210429
  Transmission Date: 20210717
  Serious: Yes (Hospitalization, Other)
  Sender: FDA-Public Use
  Company Number: BR-PURDUE-USA-2021-0247038

PATIENT
  Age: 84 Year
  Sex: Male

DRUGS (12)
  1. RESTIVA [Suspect]
     Active Substance: BUPRENORPHINE
     Indication: PAIN IN EXTREMITY
     Dosage: 10 MCG, Q1H, STRENGTH 10 MG, ONE PATCH EVERY 7 DAYS
     Route: 062
     Dates: start: 20210321
  2. OLMECOR [Concomitant]
     Active Substance: OLMESARTAN MEDOXOMIL
     Dosage: 1 TABLET, DAILY
     Route: 048
  3. CLONIDINE HYDROCHLORIDE. [Concomitant]
     Active Substance: CLONIDINE HYDROCHLORIDE
     Indication: HYPERTENSION
     Dosage: 1 TABLET, DAILY
     Route: 048
  4. LASIX [Concomitant]
     Active Substance: FUROSEMIDE
     Dosage: 0.5 TABLET, DAILY
     Route: 048
  5. PURAN [Concomitant]
     Active Substance: LEVOTHYROXINE SODIUM
     Indication: HYPOTHYROIDISM
     Dosage: 1 TABLET, DAILY
     Route: 048
  6. RESTIVA [Suspect]
     Active Substance: BUPRENORPHINE
     Indication: GAIT DISTURBANCE
     Dosage: 10 MCG, Q1H, STRENGTH 10 MG, ONE PATCH EVERY 7 DAYS
     Route: 062
     Dates: start: 20210321, end: 20210418
  7. DEXADOR                            /06215301/ [Concomitant]
     Indication: PAIN
     Dosage: 1 TABLET, Q12H
     Route: 048
  8. CORDAREX                           /00972402/ [Concomitant]
     Indication: HYPERTENSION
     Dosage: 1 TABLET, DAILY
     Route: 048
  9. COLECALCIFEROL [Concomitant]
     Active Substance: CHOLECALCIFEROL
     Dosage: 1 TABLET, BIW
     Route: 048
  10. ROSUCOR [Concomitant]
     Active Substance: ROSUVASTATIN CALCIUM
     Dosage: 1 TABLET, DAILY
     Route: 048
  11. ALLOPURINOL. [Concomitant]
     Active Substance: ALLOPURINOL
     Indication: RENAL FAILURE
     Dosage: 1 TABLET, DAILY
     Route: 048
  12. FERRIC PYROPHOSPHATE [Concomitant]
     Active Substance: FERRIC PYROPHOSPHATE
     Dosage: 1 TABLET, DAILY
     Route: 048

REACTIONS (5)
  - Dyspnoea [Recovered/Resolved]
  - Erythema [Recovered/Resolved]
  - Cellulitis [Recovered/Resolved]
  - Paraesthesia [Not Recovered/Not Resolved]
  - Peripheral swelling [Recovered/Resolved]

NARRATIVE: CASE EVENT DATE: 20210322
